FAERS Safety Report 4557799-3 (Version None)
Quarter: 2005Q1

REPORT INFORMATION
  Report Type: 
  Country: None (occurrence: None)
  Receive Date: 20050118
  Receipt Date: 20050112
  Transmission Date: 20050727
  Serious: Yes (Life-Threatening, Hospitalization, Other)
  Sender: FDA-Public Use
  Company Number: GBWYE304423DEC04

PATIENT
  Age: 24 Year
  Sex: Male

DRUGS (6)
  1. EFFEXOR XR [Suspect]
     Indication: DEPRESSION
     Dosage: VARIOUS DOSES    ORAL
     Route: 048
     Dates: start: 20041022
  2. ALCOHOL (ETHANOL) [Suspect]
  3. ANADIN                           (ASPIRIN/CAFFEINE, UNSPEC) [Suspect]
     Dosage: OVERDOSE
  4. CITALOPRAM                   (CITALOPRAM) [Suspect]
     Dosage: OVERDOSE
  5. IBUPROFEN [Suspect]
  6. PAROXETINE HCL [Suspect]
     Dosage: OVERDOSE

REACTIONS (3)
  - GRAND MAL CONVULSION [None]
  - MULTIPLE DRUG OVERDOSE [None]
  - VOMITING [None]
